FAERS Safety Report 21411511 (Version 1)
Quarter: 2022Q4

REPORT INFORMATION
  Report Type: Report from Study
  Country: CN (occurrence: CN)
  Receive Date: 20221005
  Receipt Date: 20221005
  Transmission Date: 20230113
  Serious: Yes (Hospitalization, Other)
  Sender: FDA-Public Use
  Company Number: CN-GSK-CN2022GSK140964

PATIENT

DRUGS (3)
  1. LAMIVUDINE [Suspect]
     Active Substance: LAMIVUDINE
     Indication: HIV infection
     Dosage: UNK
     Dates: start: 2013
  2. TENOFOVIR DISOPROXIL FUMARATE [Suspect]
     Active Substance: TENOFOVIR DISOPROXIL FUMARATE
     Indication: HIV infection
     Dosage: UNK
     Dates: start: 2013
  3. EFAVIRENZ [Suspect]
     Active Substance: EFAVIRENZ
     Indication: HIV infection
     Dosage: UNK
     Dates: start: 2013

REACTIONS (10)
  - Haemoglobin decreased [Unknown]
  - Non-cirrhotic portal hypertension [Unknown]
  - Faeces discoloured [Unknown]
  - Gastric varices [Unknown]
  - Chronic gastritis [Unknown]
  - Cholecystitis chronic [Unknown]
  - Renal cyst [Unknown]
  - Splenomegaly [Unknown]
  - Splenic fibrosis [Unknown]
  - Hepatic lesion [Unknown]

NARRATIVE: CASE EVENT DATE: 20160101
